FAERS Safety Report 4551011-7 (Version None)
Quarter: 2005Q1

REPORT INFORMATION
  Report Type: 
  Country: None (occurrence: None)
  Receive Date: 20050113
  Receipt Date: 20040726
  Transmission Date: 20050727
  Serious: No
  Sender: FDA-Public Use
  Company Number: US-BRISTOL-MYERS SQUIBB COMPANY-12652558

PATIENT
  Age: 51 Year
  Sex: Male
  Weight: 109 kg

DRUGS (1)
  1. CARDIOLITE [Suspect]
     Dates: start: 20040723

REACTIONS (2)
  - INJECTION SITE ERYTHEMA [None]
  - INJECTION SITE PRURITUS [None]
